FAERS Safety Report 9959227 (Version 2)
Quarter: 2014Q1

REPORT INFORMATION
  Report Type: Spontaneous
  Country: PL (occurrence: None)
  Receive Date: 20140228
  Receipt Date: 20140310
  Transmission Date: 20141002
  Serious: Yes (Other)
  Sender: FDA-Public Use
  Company Number: VAL_03005_2014

PATIENT
  Sex: Male

DRUGS (5)
  1. METOPROLOL (METOPROLOL - METOPROLOL TARTRATE) [Suspect]
     Indication: PRODUCT USED FOR UNKNOWN INDICATION
     Dosage: DF TRANSPLACENTAL
  2. METHYLDOPA (METHYLDOPA) [Suspect]
     Indication: PRODUCT USED FOR UNKNOWN INDICATION
     Dosage: DF TRANSPLACENTAL
  3. PREDNISONE (PREDNISONE) [Suspect]
     Indication: PRODUCT USED FOR UNKNOWN INDICATION
     Dosage: 5 MG (MATERNAL DOSE) TRANSPLACENTAL
  4. ENOXAPARIN (ENOXAPARIN) [Suspect]
     Indication: PRODUCT USED FOR UNKNOWN INDICATION
     Dosage: 40 MG (MATERNAL DOSE) TRANSPLACENTAL
  5. THYROXINE (THYROXINE) [Suspect]
     Indication: PRODUCT USED FOR UNKNOWN INDICATION
     Dosage: DF TRANSDERMAL

REACTIONS (3)
  - Caesarean section [None]
  - Maternal drugs affecting foetus [None]
  - Foetal monitoring abnormal [None]
